FAERS Safety Report 10685081 (Version 3)
Quarter: 2015Q3

REPORT INFORMATION
  Report Type: Report from Study
  Country: US (occurrence: US)
  Receive Date: 20141231
  Receipt Date: 20150819
  Transmission Date: 20151125
  Serious: No
  Sender: FDA-Public Use
  Company Number: US-GILEAD-2014-0129576

PATIENT
  Age: 53 Year
  Sex: Female
  Weight: 68.27 kg

DRUGS (8)
  1. REMODULIN [Suspect]
     Active Substance: TREPROSTINIL
     Dosage: 0.235 UG/KG
     Route: 058
     Dates: start: 20140818
  2. REMODULIN [Suspect]
     Active Substance: TREPROSTINIL
     Indication: PULMONARY HYPERTENSION
     Dosage: 0.023 UG/KG/MIN
     Route: 058
     Dates: start: 20140919
  3. REMODULIN [Suspect]
     Active Substance: TREPROSTINIL
     Dosage: 0.06275 UG/KG/MIN
     Route: 058
     Dates: start: 20140919
  4. REMODULIN [Suspect]
     Active Substance: TREPROSTINIL
     Indication: PULMONARY HYPERTENSION
     Dosage: 0.028 UG/KG
     Route: 058
  5. REMODULIN [Suspect]
     Active Substance: TREPROSTINIL
     Dosage: 0.0655 ?G/KG
     Route: 058
     Dates: start: 20140917
  6. AMBRISENTAN [Suspect]
     Active Substance: AMBRISENTAN
     Indication: PRODUCT USED FOR UNKNOWN INDICATION
     Dosage: 10 MG, QD
     Route: 065
     Dates: start: 20140110
  7. REMODULIN [Suspect]
     Active Substance: TREPROSTINIL
     Dosage: 0.037 UG/KG
     Route: 058
     Dates: start: 20141125
  8. WARFARIN [Concomitant]
     Active Substance: WARFARIN

REACTIONS (3)
  - Sinusitis [Unknown]
  - Nasal congestion [Unknown]
  - Headache [Unknown]

NARRATIVE: CASE EVENT DATE: 201412
